FAERS Safety Report 12983371 (Version 1)
Quarter: 2016Q4

REPORT INFORMATION
  Report Type: Spontaneous
  Country: CA (occurrence: CA)
  Receive Date: 20161129
  Receipt Date: 20161129
  Transmission Date: 20170207
  Serious: Yes (Other)
  Sender: FDA-Public Use
  Company Number: CA-FRESENIUS KABI-FK201609102

PATIENT
  Age: 2 Month
  Sex: Female

DRUGS (1)
  1. VINBLASTINE (MANUFACTURER UNKNOWN) [Suspect]
     Active Substance: VINBLASTINE
     Indication: GLIOMA
     Route: 065

REACTIONS (2)
  - Neutropenia [Recovered/Resolved]
  - Hyponatraemia [Recovered/Resolved]
